FAERS Safety Report 11562559 (Version 1)
Quarter: 2015Q3

REPORT INFORMATION
  Report Type: Spontaneous
  Country: US (occurrence: US)
  Receive Date: 20150916
  Receipt Date: 20150916
  Transmission Date: 20151125
  Serious: No
  Sender: FDA-Public Use
  Company Number: US-ELI_LILLY_AND_COMPANY-US200812003707

PATIENT
  Sex: Female

DRUGS (11)
  1. ASPIRIN. [Concomitant]
     Active Substance: ASPIRIN
  2. PLAVIX [Concomitant]
     Active Substance: CLOPIDOGREL BISULFATE
  3. SPIRIVA [Concomitant]
     Active Substance: TIOTROPIUM BROMIDE MONOHYDRATE
  4. SYNTHROID [Concomitant]
     Active Substance: LEVOTHYROXINE SODIUM
  5. DILTIAZEM [Concomitant]
     Active Substance: DILTIAZEM
  6. ALEVE [Concomitant]
     Active Substance: NAPROXEN SODIUM
  7. FORTEO [Suspect]
     Active Substance: TERIPARATIDE
     Indication: OSTEOPOROSIS
     Dosage: 20 UG, DAILY (1/D)
     Dates: start: 200806
  8. ZOCOR [Concomitant]
     Active Substance: SIMVASTATIN
  9. POTASSIUM [Concomitant]
     Active Substance: POTASSIUM
  10. FLUOXETINE [Concomitant]
     Active Substance: FLUOXETINE\FLUOXETINE HYDROCHLORIDE
  11. CALCIUM [Concomitant]
     Active Substance: CALCIUM

REACTIONS (2)
  - Musculoskeletal pain [Not Recovered/Not Resolved]
  - Hypoacusis [Not Recovered/Not Resolved]

NARRATIVE: CASE EVENT DATE: 2008
